FAERS Safety Report 4975052-0 (Version None)
Quarter: 2006Q2

REPORT INFORMATION
  Report Type: 
  Country: None (occurrence: None)
  Receive Date: 20060418
  Receipt Date: 20060406
  Transmission Date: 20061013
  Serious: Yes (Death, Hospitalization)
  Sender: FDA-Public Use
  Company Number: US-ROCHE-443319

PATIENT
  Age: 72 Year
  Sex: Female
  Weight: 77.6 kg

DRUGS (8)
  1. CAPECITABINE [Suspect]
     Indication: GASTRIC CANCER
     Dosage: FROM DAYS ONE TO SEVEN EVERY TWO WEEKS.
     Route: 048
     Dates: start: 20060118
  2. CAPECITABINE [Suspect]
     Dosage: FROM DAYS ONE TO SEVEN EVERY TWO WEEKS.
     Route: 048
     Dates: start: 20060201
  3. CAPECITABINE [Suspect]
     Dosage: GIVEN FROM DAYS ONE TO SEVEN EVERY TWO WEEKS.
     Route: 048
     Dates: start: 20060222
  4. CAPECITABINE [Suspect]
     Dosage: GIVEN FROM DAYS ONE TO SEVEN EVERY TWO WEEKS.
     Route: 048
     Dates: start: 20060308
  5. OXALIPLATIN [Suspect]
     Indication: GASTRIC CANCER
     Route: 042
     Dates: start: 20060118
  6. OXALIPLATIN [Suspect]
     Route: 042
     Dates: start: 20060201
  7. OXALIPLATIN [Suspect]
     Route: 042
     Dates: start: 20060222
  8. OXALIPLATIN [Suspect]
     Route: 042
     Dates: start: 20060306

REACTIONS (5)
  - ACUTE MYOCARDIAL INFARCTION [None]
  - HYPOTENSION [None]
  - RENAL FAILURE ACUTE [None]
  - RESPIRATORY FAILURE [None]
  - SUPRAVENTRICULAR TACHYCARDIA [None]
